FAERS Safety Report 17080935 (Version 1)
Quarter: 2019Q4

REPORT INFORMATION
  Report Type: Spontaneous
  Country: US (occurrence: US)
  Receive Date: 20191124
  Receipt Date: 20191124
  Transmission Date: 20200122
  Serious: Yes (Hospitalization)
  Sender: FDA-Public Use
  Company Number: None

PATIENT
  Age: 66 Year
  Sex: Male
  Weight: 65 kg

DRUGS (4)
  1. WARFARIN [Suspect]
     Active Substance: WARFARIN
     Indication: ATRIAL FIBRILLATION
     Route: 048
     Dates: start: 20190205
  2. ENOXAPARIN [Suspect]
     Active Substance: ENOXAPARIN
     Indication: AORTIC VALVE DISEASE
  3. WARFARIN [Suspect]
     Active Substance: WARFARIN
     Indication: AORTIC VALVE DISEASE
  4. ENOXAPARIN [Suspect]
     Active Substance: ENOXAPARIN
     Indication: ATRIAL FIBRILLATION
     Route: 048
     Dates: start: 20190917, end: 20191003

REACTIONS (4)
  - International normalised ratio increased [None]
  - Gastric haemorrhage [None]
  - Anaemia [None]
  - Dizziness [None]

NARRATIVE: CASE EVENT DATE: 20191003
